FAERS Safety Report 4932632-6 (Version None)
Quarter: 2006Q1

REPORT INFORMATION
  Report Type: 
  Country: None (occurrence: None)
  Receive Date: 20060301
  Receipt Date: 20060216
  Transmission Date: 20060701
  Serious: Yes (Hospitalization, Other)
  Sender: FDA-Public Use
  Company Number: TCI2006A00022

PATIENT
  Age: 71 Year
  Sex: Male

DRUGS (5)
  1. ACTOS [Suspect]
     Indication: DIABETES MELLITUS
     Dosage: 15 MG (15 MG, 1 IN 1 D) PER ORAL
     Route: 048
     Dates: start: 20030805, end: 20051221
  2. NORVASC [Concomitant]
  3. LOSARTAN POTASSIUM [Concomitant]
  4. ALMATOL (SPIRONOLACTONE) [Concomitant]
  5. GLYBURIDE [Concomitant]

REACTIONS (6)
  - BLOOD GLUCOSE INCREASED [None]
  - CEREBRAL ATROPHY [None]
  - GLYCOSYLATED HAEMOGLOBIN INCREASED [None]
  - HYPERTENSION [None]
  - HYPOAESTHESIA [None]
  - RHABDOMYOLYSIS [None]
